FAERS Safety Report 6990573-7 (Version None)
Quarter: 2010Q3

REPORT INFORMATION
  Report Type: 
  Country: None (occurrence: None)
  Receive Date: 20100916
  Receipt Date: 20100709
  Transmission Date: 20110219
  Serious: Yes (Other)
  Sender: FDA-Public Use
  Company Number: US-PFIZER INC-2010086572

PATIENT
  Sex: Male
  Weight: 272.11 kg

DRUGS (3)
  1. LYRICA [Suspect]
     Indication: SCIATIC NERVE INJURY
     Dosage: 50MG DAILY
     Route: 048
     Dates: start: 20090101
  2. GLIPIZIDE [Concomitant]
     Indication: DIABETES MELLITUS
     Dosage: 10 MG, 2X/DAY
     Route: 048
  3. AVANDAMET [Concomitant]
     Indication: DIABETES MELLITUS
     Dosage: 4/1000 MG, 2X/DAY

REACTIONS (3)
  - FEELINGS OF WORTHLESSNESS [None]
  - MENTAL DISORDER [None]
  - SUICIDAL IDEATION [None]
